FAERS Safety Report 10898521 (Version 1)
Quarter: 2015Q1

REPORT INFORMATION
  Report Type: Report from Study
  Country: US (occurrence: US)
  Receive Date: 20150309
  Receipt Date: 20150309
  Transmission Date: 20150721
  Serious: No
  Sender: FDA-Public Use
  Company Number: US-ABBVIE-14P-163-1254205-00

PATIENT
  Age: 32 Year
  Sex: Female
  Weight: 102.15 kg

DRUGS (1)
  1. LUPRON DEPOT [Suspect]
     Active Substance: LEUPROLIDE ACETATE
     Indication: ENDOMETRIOSIS
     Route: 030
     Dates: start: 20140415

REACTIONS (6)
  - Contusion [Not Recovered/Not Resolved]
  - Fall [Recovered/Resolved]
  - Joint effusion [Not Recovered/Not Resolved]
  - Tendon discomfort [Not Recovered/Not Resolved]
  - Pain [Recovering/Resolving]
  - Joint injury [Recovered/Resolved]

NARRATIVE: CASE EVENT DATE: 201406
